FAERS Safety Report 13382078 (Version 2)
Quarter: 2017Q2

REPORT INFORMATION
  Report Type: Spontaneous
  Country: RU (occurrence: RU)
  Receive Date: 20170329
  Receipt Date: 20170611
  Transmission Date: 20170830
  Serious: Yes (Hospitalization, Other)
  Sender: FDA-Public Use
  Company Number: RU-AMGEN-RUSSP2017045947

PATIENT
  Age: 5 Year
  Sex: Female
  Weight: 16 kg

DRUGS (8)
  1. RITUXIMAB [Concomitant]
     Active Substance: RITUXIMAB
     Indication: PLATELET COUNT DECREASED
     Dosage: 750 MG/M2, QD
     Dates: start: 20141023
  2. REALDIRON [Concomitant]
     Indication: PLATELET COUNT DECREASED
     Dosage: 1 MILLION, UNK
     Dates: start: 20140626, end: 20141001
  3. IMMUNOGLOBULIN HUMAN NORMAL [Concomitant]
     Active Substance: HUMAN IMMUNOGLOBULIN G
     Dosage: UNK
  4. NPLATE [Suspect]
     Active Substance: ROMIPLOSTIM
     Indication: IMMUNE THROMBOCYTOPENIC PURPURA
     Dosage: 8-15 MCG/KG, QWK
     Route: 058
     Dates: start: 20140507, end: 20150115
  5. METYPRED [Concomitant]
     Active Substance: METHYLPREDNISOLONE
     Indication: BLOOD DISORDER
     Dosage: 20 MG/KG, TID
     Dates: start: 20141030, end: 20141101
  6. INTERFERON ALFA NOS [Concomitant]
     Active Substance: INTERFERON ALFA-2A OR INTERFERON ALFA-2B
     Dosage: UNK
  7. NPLATE [Suspect]
     Active Substance: ROMIPLOSTIM
     Indication: PLATELET COUNT DECREASED
  8. ONTIME [Concomitant]
     Indication: BLOOD DISORDER
     Dosage: 15 G, UNK
     Dates: end: 201412

REACTIONS (6)
  - Anaemia [Recovered/Resolved]
  - Off label use [Unknown]
  - Gastrointestinal haemorrhage [Recovered/Resolved]
  - Porphyria non-acute [Unknown]
  - Drug ineffective [Unknown]
  - Thrombocytopenia [Unknown]

NARRATIVE: CASE EVENT DATE: 20150131
